FAERS Safety Report 4828205-6 (Version None)
Quarter: 2005Q4

REPORT INFORMATION
  Report Type: 
  Country: None (occurrence: None)
  Receive Date: 20051115
  Receipt Date: 20051110
  Transmission Date: 20060501
  Serious: Yes (Other)
  Sender: FDA-Public Use
  Company Number: GB-GLAXOSMITHKLINE-B0400141A

PATIENT
  Sex: Female

DRUGS (11)
  1. AMOXICILLIN [Suspect]
     Indication: BREAST INFECTION
     Dosage: 250MG FOUR TIMES PER DAY
     Route: 048
     Dates: end: 20051025
  2. LORATADINE [Concomitant]
     Indication: HYPERSENSITIVITY
     Dosage: 10MG PER DAY
     Route: 065
  3. ARTHROTEC [Concomitant]
     Indication: PAIN
     Dosage: 75MG TWICE PER DAY
     Route: 065
  4. ATORVASTATIN CALCIUM [Concomitant]
     Dosage: 40MG AT NIGHT
     Route: 065
  5. ASPIRIN [Concomitant]
     Indication: ANTIPLATELET THERAPY
     Dosage: 75MG IN THE MORNING
     Route: 048
  6. BETAHISTINE [Concomitant]
     Indication: DIZZINESS
     Dosage: 16MG PER DAY
     Route: 065
  7. CO-AMILOFRUSE [Concomitant]
     Indication: FLUID RETENTION
     Dosage: 1TAB IN THE MORNING
     Route: 065
  8. CO-DYDRAMOL [Concomitant]
     Route: 065
  9. SERETIDE [Concomitant]
     Indication: CHRONIC OBSTRUCTIVE PULMONARY DISEASE
     Dosage: 2PUFF TWICE PER DAY
     Route: 065
  10. HORMONIN [Concomitant]
     Dosage: 2U PER DAY
     Route: 065
  11. GTN-S [Concomitant]
     Indication: ANGINA PECTORIS
     Dosage: 1U AS REQUIRED
     Route: 048

REACTIONS (6)
  - ANAPHYLACTIC REACTION [None]
  - CHEST DISCOMFORT [None]
  - OEDEMA PERIPHERAL [None]
  - RASH [None]
  - SWELLING FACE [None]
  - URTICARIA [None]
